FAERS Safety Report 4363831-2 (Version None)
Quarter: 2004Q2

REPORT INFORMATION
  Report Type: 
  Country: None (occurrence: None)
  Receive Date: 20040514
  Receipt Date: 20040504
  Transmission Date: 20050107
  Serious: Yes (Life-Threatening)
  Sender: FDA-Public Use
  Company Number: SAGL-ZLB/ 04/09/UNK

PATIENT
  Age: 66 Year
  Sex: Male
  Weight: 74 kg

DRUGS (8)
  1. SANDOGLOBULIN (IMMUNOGLOBULIN HUMAN NORMAL) (SOLUTION) [Suspect]
     Indication: CHRONIC INFLAMMATORY DEMYELINATING POLYRADICULONEUROPATHY
     Dosage: 27 G, O.A.D., I.V.
     Route: 042
     Dates: start: 20030731, end: 20030804
  2. SANDOGLOBULIN (IMMUNOGLOBULIN HUMAN NORMAL) (SOLUTION) [Suspect]
     Indication: GAMMOPATHY
     Dosage: 27 G, O.A.D., I.V.
     Route: 042
     Dates: start: 20030731, end: 20030804
  3. SANDOGLOBULIN (IMMUNOGLOBULIN HUMAN NORMAL) (SOLUTION) [Suspect]
  4. SANDOGLOBULIN (IMMUNOGLOBULIN HUMAN NORMAL) (SOLUTION) [Suspect]
  5. ASPIRIN [Concomitant]
  6. DIGOXIN [Concomitant]
  7. CARBIMAZOLE (CARBIMAZOLE) [Concomitant]
  8. GLUCOBAY [Concomitant]

REACTIONS (5)
  - ARTHRITIS BACTERIAL [None]
  - POLLAKIURIA [None]
  - SEPSIS [None]
  - STAPHYLOCOCCAL INFECTION [None]
  - URINARY RETENTION [None]
